FAERS Safety Report 17250119 (Version 1)
Quarter: 2020Q1

REPORT INFORMATION
  Report Type: Spontaneous
  Country: IT (occurrence: IT)
  Receive Date: 20200109
  Receipt Date: 20200109
  Transmission Date: 20200409
  Serious: Yes (Other)
  Sender: FDA-Public Use
  Company Number: IT-ACCORD-169052

PATIENT
  Age: 51 Year
  Sex: Male

DRUGS (14)
  1. TRUXIMA [Suspect]
     Active Substance: RITUXIMAB-ABBS
     Indication: MANTLE CELL LYMPHOMA STAGE IV
     Dosage: STRENGTH-100 MG
     Route: 042
     Dates: start: 20191104, end: 20191104
  2. AMIKACIN. [Suspect]
     Active Substance: AMIKACIN
     Indication: PYREXIA
     Route: 042
     Dates: start: 20191115, end: 20191119
  3. BACTRIM [Concomitant]
     Active Substance: SULFAMETHOXAZOLE\TRIMETHOPRIM
     Route: 048
  4. DEXAMETHASONE. [Concomitant]
     Active Substance: DEXAMETHASONE
     Route: 042
  5. TAZOCIN [Suspect]
     Active Substance: PIPERACILLIN SODIUM\TAZOBACTAM SODIUM
     Indication: PYREXIA
     Route: 042
     Dates: start: 20191115, end: 20191119
  6. LANSOX [Concomitant]
     Active Substance: LANSOPRAZOLE
  7. BINOCRIT [Concomitant]
     Active Substance: ERYTHROPOIETIN
  8. DIBASE [Concomitant]
     Active Substance: CHOLECALCIFEROL
     Route: 048
  9. KEPPRA [Concomitant]
     Active Substance: LEVETIRACETAM
     Dosage: 750 MG FILM-COATED TABLETS
     Route: 048
  10. NORVASC [Concomitant]
     Active Substance: AMLODIPINE BESYLATE
     Route: 048
  11. METHOTREXATE. [Suspect]
     Active Substance: METHOTREXATE
     Indication: MANTLE CELL LYMPHOMA STAGE IV
     Route: 042
     Dates: start: 20191104, end: 20191104
  12. FLUAD NOS [Suspect]
     Active Substance: INFLUENZA VIRUS VACCINE
     Indication: ANTIVIRAL PROPHYLAXIS
     Route: 030
     Dates: start: 20191104, end: 20191104
  13. TRIATEC [Concomitant]
     Route: 048
  14. LOBIVON [Concomitant]
     Active Substance: NEBIVOLOL HYDROCHLORIDE
     Route: 048

REACTIONS (1)
  - Guillain-Barre syndrome [Not Recovered/Not Resolved]

NARRATIVE: CASE EVENT DATE: 20191119
